FAERS Safety Report 6490257-8 (Version None)
Quarter: 2009Q4

REPORT INFORMATION
  Report Type: 
  Country: None (occurrence: None)
  Receive Date: 20091211
  Receipt Date: 20091203
  Transmission Date: 20100525
  Serious: Yes (Disabling)
  Sender: FDA-Public Use
  Company Number: GB-SANOFI-AVENTIS-2009SA006971

PATIENT
  Sex: Male

DRUGS (5)
  1. PLAVIX [Suspect]
     Indication: CORONARY ARTERY STENOSIS
     Route: 048
     Dates: start: 20090101
  2. CARBAMAZEPINE [Concomitant]
     Indication: TEMPORAL LOBE EPILEPSY
  3. RISEDRONATE SODIUM [Concomitant]
     Indication: THORACIC VERTEBRAL FRACTURE
  4. ADCAL [Concomitant]
     Indication: THORACIC VERTEBRAL FRACTURE
  5. ASPIRIN [Concomitant]
     Indication: CORONARY ARTERY STENOSIS
     Route: 065
     Dates: start: 20090101

REACTIONS (3)
  - ARTHRALGIA [None]
  - ASTHENIA [None]
  - BONE PAIN [None]
